FAERS Safety Report 18365055 (Version 1)
Quarter: 2020Q4

REPORT INFORMATION
  Report Type: Spontaneous
  Country: IT (occurrence: IT)
  Receive Date: 20201009
  Receipt Date: 20201009
  Transmission Date: 20210114
  Serious: Yes (Life-Threatening, Hospitalization, Other)
  Sender: FDA-Public Use
  Company Number: IT-HIKMA PHARMACEUTICALS USA INC.-IT-H14001-20-52228

PATIENT
  Age: 81 Year
  Sex: Male

DRUGS (4)
  1. METHYLPREDNISOLONE. [Suspect]
     Active Substance: METHYLPREDNISOLONE
     Route: 065
     Dates: start: 2019, end: 2019
  2. METHYLPREDNISOLONE. [Suspect]
     Active Substance: METHYLPREDNISOLONE
     Indication: DERMATITIS
     Dosage: SYSTEMIC, TAPERING OVER WEEKS
     Route: 065
     Dates: start: 2019, end: 2019
  3. METHYLPREDNISOLONE. [Suspect]
     Active Substance: METHYLPREDNISOLONE
     Dosage: UNKNOWN
     Route: 061
     Dates: start: 2019, end: 2019
  4. METHYLPREDNISOLONE. [Suspect]
     Active Substance: METHYLPREDNISOLONE
     Route: 065
     Dates: start: 2019

REACTIONS (10)
  - Cardiac failure congestive [Unknown]
  - Staphylococcal infection [Unknown]
  - Superinfection bacterial [Unknown]
  - Atrial fibrillation [Unknown]
  - Acute pulmonary oedema [Unknown]
  - Acarodermatitis [Recovered/Resolved]
  - Immune system disorder [Recovering/Resolving]
  - Pneumonia pseudomonal [Unknown]
  - Pneumonia bacterial [Unknown]
  - Condition aggravated [Recovered/Resolved]

NARRATIVE: CASE EVENT DATE: 2019
